FAERS Safety Report 20208705 (Version 1)
Quarter: 2021Q4

REPORT INFORMATION
  Report Type: Spontaneous
  Country: ES (occurrence: ES)
  Receive Date: 20211220
  Receipt Date: 20211220
  Transmission Date: 20220303
  Serious: Yes (Other)
  Sender: FDA-Public Use
  Company Number: ES-GLAXOSMITHKLINE-ESCH2021GSK089552

PATIENT
  Age: 29 Year
  Sex: Female

DRUGS (5)
  1. ASPIRIN [Suspect]
     Active Substance: ASPIRIN
     Indication: Product used for unknown indication
     Dosage: UNK
     Route: 048
  2. IBUPROFEN [Suspect]
     Active Substance: IBUPROFEN
     Indication: Product used for unknown indication
     Dosage: UNK
     Route: 048
  3. EBASTINE [Concomitant]
     Active Substance: EBASTINE
     Indication: Erythema
     Dosage: UNK
  4. EBASTINE [Concomitant]
     Active Substance: EBASTINE
     Indication: Pruritus
  5. EBASTINE [Concomitant]
     Active Substance: EBASTINE
     Indication: Urticaria

REACTIONS (1)
  - Angioedema [Unknown]
